FAERS Safety Report 7660385-X (Version None)
Quarter: 2011Q3

REPORT INFORMATION
  Report Type: 
  Country: None (occurrence: None)
  Receive Date: 20110805
  Receipt Date: 20110727
  Transmission Date: 20111222
  Serious: Yes (Other)
  Sender: FDA-Public Use
  Company Number: FR-ASTRAZENECA-2011SE17281

PATIENT
  Age: 36 Year
  Sex: Female
  Weight: 60 kg

DRUGS (4)
  1. XANAX [Concomitant]
     Indication: DEPRESSION
     Dates: start: 20090901
  2. PAROXETINE HCL [Concomitant]
     Indication: DEPRESSION
     Dates: start: 20090901
  3. ZOLMITRIPTAN [Suspect]
     Route: 048
  4. ZOLMITRIPTAN [Suspect]
     Route: 048
     Dates: start: 20100101

REACTIONS (1)
  - MENTAL DISORDER [None]
